FAERS Safety Report 13925379 (Version 2)
Quarter: 2017Q4

REPORT INFORMATION
  Report Type: Spontaneous
  Country: US (occurrence: US)
  Receive Date: 20170831
  Receipt Date: 20171003
  Transmission Date: 20180320
  Serious: Yes (Hospitalization, Other)
  Sender: FDA-Public Use
  Company Number: US-CELLTRION HEALTHCARE JAPAN K.K.-2017US009899

PATIENT

DRUGS (9)
  1. VITAMIN D3 [Concomitant]
     Active Substance: CHOLECALCIFEROL
     Route: 065
  2. PREDNISONE. [Concomitant]
     Active Substance: PREDNISONE
     Route: 065
  3. INFLECTRA [Suspect]
     Active Substance: INFLIXIMAB-DYYB
     Indication: CROHN^S DISEASE
     Dosage: 400 MG, UNK (FIRST DOSE)
     Route: 042
     Dates: start: 20170627, end: 20170627
  4. REMICADE [Suspect]
     Active Substance: INFLIXIMAB
     Indication: PRODUCT USED FOR UNKNOWN INDICATION
     Dosage: UNK
     Route: 065
  5. HEPARIN [Concomitant]
     Active Substance: HEPARIN SODIUM
     Route: 065
  6. ATENOLOL. [Concomitant]
     Active Substance: ATENOLOL
     Route: 065
  7. ELIQUIS [Concomitant]
     Active Substance: APIXABAN
     Route: 065
  8. VITAMIN B12 [Concomitant]
     Active Substance: CYANOCOBALAMIN
     Route: 065
  9. COENZYME Q10 VITAFORCE [Concomitant]
     Route: 065

REACTIONS (17)
  - Asthenia [Unknown]
  - Malaise [Unknown]
  - Pain [Unknown]
  - Arrhythmia [Unknown]
  - Rash [Unknown]
  - Joint swelling [Recovering/Resolving]
  - Dehydration [Unknown]
  - Musculoskeletal stiffness [Recovering/Resolving]
  - Atrial fibrillation [Unknown]
  - Lupus-like syndrome [Unknown]
  - Pyrexia [Unknown]
  - Arthralgia [Unknown]
  - Hypersensitivity [Unknown]
  - Chills [Recovering/Resolving]
  - Lymphadenopathy [Unknown]
  - Tachycardia [Unknown]
  - Hypertension [Unknown]

NARRATIVE: CASE EVENT DATE: 20170705
